FAERS Safety Report 6007745-0 (Version None)
Quarter: 2008Q4

REPORT INFORMATION
  Report Type: 
  Country: None (occurrence: None)
  Receive Date: 20081217
  Receipt Date: 20080527
  Transmission Date: 20090506
  Serious: No
  Sender: FDA-Public Use
  Company Number: US-ASTRAZENECA-2008UW10737

PATIENT
  Age: 70 Year
  Sex: Male
  Weight: 77.1 kg

DRUGS (9)
  1. CRESTOR [Suspect]
     Indication: BLOOD CHOLESTEROL INCREASED
     Route: 048
     Dates: start: 20080514, end: 20080526
  2. ZOLOFT [Concomitant]
  3. TRICOR [Concomitant]
  4. WELLBUTRIN [Concomitant]
  5. PRIMIDONE [Concomitant]
  6. GLIPIZIDE [Concomitant]
  7. LITHIUM CARBONATE [Concomitant]
  8. CITOPRAM [Concomitant]
  9. CARBIDOPA AND LEVODOPA [Concomitant]

REACTIONS (4)
  - AMNESIA [None]
  - DIZZINESS [None]
  - FALL [None]
  - FEELING ABNORMAL [None]
